FAERS Safety Report 16906829 (Version 16)
Quarter: 2020Q2

REPORT INFORMATION
  Report Type: Report from Study
  Country: None (occurrence: ES)
  Receive Date: 20191011
  Receipt Date: 20200629
  Transmission Date: 20200713
  Serious: Yes (Other)
  Sender: FDA-Public Use
  Company Number: ES-ABBVIE-19K-144-2949903-00

PATIENT
  Age: 84 Year
  Sex: Female

DRUGS (9)
  1. DUODOPA [Suspect]
     Active Substance: CARBIDOPA\LEVODOPA
     Dosage: INCREASED THE MORNING DOSE TO 20ML
     Route: 050
     Dates: start: 20200225, end: 2020
  2. DUODOPA [Suspect]
     Active Substance: CARBIDOPA\LEVODOPA
     Dosage: MORNING DOSE 20 ML
     Route: 050
     Dates: start: 2020, end: 2020
  3. DUODOPA [Suspect]
     Active Substance: CARBIDOPA\LEVODOPA
     Dosage: DOSE INCREASED
     Route: 050
     Dates: start: 20191003, end: 20200225
  4. DUODOPA [Suspect]
     Active Substance: CARBIDOPA\LEVODOPA
     Dosage: MORNING DOSE 16 ML
     Route: 050
     Dates: start: 20200521, end: 202006
  5. DUODOPA [Suspect]
     Active Substance: CARBIDOPA\LEVODOPA
     Dosage: REDUCE THE MORNING DOSE
     Route: 050
     Dates: start: 202006
  6. DUODOPA [Suspect]
     Active Substance: CARBIDOPA\LEVODOPA
     Indication: PARKINSON^S DISEASE
     Route: 050
     Dates: start: 20190724, end: 20191003
  7. DUODOPA [Suspect]
     Active Substance: CARBIDOPA\LEVODOPA
     Dosage: MORNING DOSE DECREASED TO 16 ML
     Route: 050
     Dates: start: 2020, end: 20200421
  8. DUODOPA [Suspect]
     Active Substance: CARBIDOPA\LEVODOPA
     Dosage: INCREASE THE MORNING DOSE TO 17 ML
     Route: 050
     Dates: start: 20200421, end: 20200521
  9. DUODOPA [Suspect]
     Active Substance: CARBIDOPA\LEVODOPA
     Dosage: DECREASE THE MORNING DOSE TO 16 ML
     Route: 050
     Dates: start: 2020, end: 2020

REACTIONS (25)
  - Mobility decreased [Recovered/Resolved]
  - Mobility decreased [Recovering/Resolving]
  - Disability [Recovered/Resolved]
  - Feeling abnormal [Not Recovered/Not Resolved]
  - Somnolence [Unknown]
  - Freezing phenomenon [Recovered/Resolved]
  - Drug ineffective [Unknown]
  - Loss of consciousness [Not Recovered/Not Resolved]
  - Malaise [Not Recovered/Not Resolved]
  - Gait disturbance [Recovered/Resolved]
  - Tremor [Recovered/Resolved]
  - Sensitivity to weather change [Unknown]
  - Lethargy [Recovering/Resolving]
  - Anxiety [Not Recovered/Not Resolved]
  - On and off phenomenon [Recovering/Resolving]
  - Syncope [Not Recovered/Not Resolved]
  - General physical health deterioration [Not Recovered/Not Resolved]
  - Nervousness [Not Recovered/Not Resolved]
  - Depressed mood [Recovering/Resolving]
  - Dyskinesia [Not Recovered/Not Resolved]
  - Disability [Unknown]
  - Loss of personal independence in daily activities [Unknown]
  - Dyskinesia [Recovered/Resolved]
  - General physical health deterioration [Recovered/Resolved]
  - Asthenia [Not Recovered/Not Resolved]

NARRATIVE: CASE EVENT DATE: 2019
